FAERS Safety Report 15686216 (Version 1)
Quarter: 2018Q4

REPORT INFORMATION
  Report Type: Report from Study
  Country: BR (occurrence: BR)
  Receive Date: 20181204
  Receipt Date: 20181204
  Transmission Date: 20190205
  Serious: Yes (Life-Threatening, Other)
  Sender: FDA-Public Use
  Company Number: PHHY2016BR123189

PATIENT
  Age: 61 Year
  Sex: Female
  Weight: 80 kg

DRUGS (16)
  1. XOLAIR [Suspect]
     Active Substance: OMALIZUMAB
     Dosage: UNK
     Route: 058
     Dates: start: 201801
  2. XOLAIR [Suspect]
     Active Substance: OMALIZUMAB
     Dosage: UNK
     Route: 058
     Dates: start: 20180620
  3. XOLAIR [Suspect]
     Active Substance: OMALIZUMAB
     Dosage: UNK
     Route: 058
     Dates: start: 201809, end: 201809
  4. EUTHYROX [Concomitant]
     Active Substance: LEVOTHYROXINE SODIUM
     Indication: THYROID DISORDER
     Dosage: 1 DF, QD
     Route: 048
  5. XOLAIR [Suspect]
     Active Substance: OMALIZUMAB
     Indication: BRONCHITIS CHRONIC
     Dosage: UNK
     Route: 058
     Dates: start: 20160914, end: 2017
  6. FORASEQ [Suspect]
     Active Substance: BUDESONIDE\FORMOTEROL FUMARATE
     Indication: ASTHMA
     Dosage: 1 DF, Q12H (1 TABLET OF EACH TREATMENT)
     Route: 055
  7. TYLOX [Concomitant]
     Active Substance: ACETAMINOPHEN\OXYCODONE HYDROCHLORIDE
     Indication: PRODUCT USED FOR UNKNOWN INDICATION
     Dosage: 150 MG, (FOR 14 YEARS)
     Route: 065
  8. METICORTEN [Concomitant]
     Active Substance: PREDNISONE
     Indication: PRODUCT USED FOR UNKNOWN INDICATION
     Route: 065
  9. INFLUENZA VACCINE [Concomitant]
     Active Substance: INFLUENZA VIRUS VACCINE
     Indication: PRODUCT USED FOR UNKNOWN INDICATION
     Route: 065
  10. XOLAIR [Suspect]
     Active Substance: OMALIZUMAB
     Indication: ASTHMA
     Dosage: 600 MG, BIW,(ONCE EVERY 14 DAYS)
     Route: 058
     Dates: start: 20160831
  11. ALENIA [Concomitant]
     Active Substance: BUDESONIDE\FORMOTEROL FUMARATE
     Indication: ASTHMA
     Dosage: 1 DF, Q12H (STARTED 7 YEARS AGO)
     Route: 055
  12. ALENIA [Concomitant]
     Active Substance: BUDESONIDE\FORMOTEROL FUMARATE
     Dosage: 3 DF, QD (3 ASPIRATIONS PER DAY)
     Route: 055
  13. XOLAIR [Suspect]
     Active Substance: OMALIZUMAB
     Dosage: UNK
     Route: 058
     Dates: start: 20180726
  14. FORASEQ [Suspect]
     Active Substance: BUDESONIDE\FORMOTEROL FUMARATE
     Dosage: 400 UG, UNK
     Route: 055
  15. SPIRIVA [Concomitant]
     Active Substance: TIOTROPIUM BROMIDE MONOHYDRATE
     Indication: ASTHMA
     Dosage: QD
     Route: 055
  16. OMEPRAZOLE. [Concomitant]
     Active Substance: OMEPRAZOLE
     Indication: HIATUS HERNIA
     Dosage: 1 DF, QD
     Route: 048

REACTIONS (51)
  - Malaise [Recovered/Resolved]
  - Dyspnoea [Not Recovered/Not Resolved]
  - Dyspnoea [Recovered/Resolved]
  - Sensitivity to weather change [Unknown]
  - Erythema [Unknown]
  - Nervousness [Not Recovered/Not Resolved]
  - Pain [Not Recovered/Not Resolved]
  - Injection site bruising [Not Recovered/Not Resolved]
  - Wheezing [Recovering/Resolving]
  - Injection site pain [Not Recovered/Not Resolved]
  - Lung disorder [Unknown]
  - Insomnia [Recovered/Resolved]
  - Injection site erythema [Recovered/Resolved]
  - Sinusitis [Unknown]
  - Injection site reaction [Recovering/Resolving]
  - Pruritus [Unknown]
  - Injection site pain [Recovered/Resolved]
  - Injection site swelling [Not Recovered/Not Resolved]
  - Dyspnoea [Recovered/Resolved]
  - Dyspnoea [Recovered/Resolved]
  - Malaise [Recovered/Resolved]
  - Cough [Recovered/Resolved]
  - Peripheral swelling [Unknown]
  - Product use in unapproved indication [Unknown]
  - Pneumonia [Recovered/Resolved]
  - Pneumonia [Recovered/Resolved]
  - Asthma [Not Recovered/Not Resolved]
  - Injection site discolouration [Unknown]
  - Sputum discoloured [Recovered/Resolved]
  - Insomnia [Recovered/Resolved]
  - Injection site haematoma [Recovered/Resolved]
  - Injection site swelling [Recovered/Resolved]
  - Hypersensitivity [Recovering/Resolving]
  - Malaise [Recovered/Resolved]
  - Fatigue [Not Recovered/Not Resolved]
  - Acne [Unknown]
  - Injection site haematoma [Recovered/Resolved]
  - Injection site erythema [Recovered/Resolved]
  - Drug ineffective [Not Recovered/Not Resolved]
  - Asthmatic crisis [Not Recovered/Not Resolved]
  - Nasopharyngitis [Not Recovered/Not Resolved]
  - Urticaria [Unknown]
  - Headache [Not Recovered/Not Resolved]
  - Injection site erythema [Not Recovered/Not Resolved]
  - Insomnia [Recovered/Resolved]
  - Secretion discharge [Recovered/Resolved]
  - Injection site urticaria [Unknown]
  - Pyrexia [Unknown]
  - Oropharyngeal pain [Recovered/Resolved]
  - Malaise [Not Recovered/Not Resolved]
  - Injection site pain [Recovered/Resolved]

NARRATIVE: CASE EVENT DATE: 20160901
